FAERS Safety Report 19478491 (Version 2)
Quarter: 2021Q3

REPORT INFORMATION
  Report Type: Spontaneous
  Country: BR (occurrence: BR)
  Receive Date: 20210630
  Receipt Date: 20210706
  Transmission Date: 20211014
  Serious: Yes (Other)
  Sender: FDA-Public Use
  Company Number: BR-GLAXOSMITHKLINE-BR2021AMR138381

PATIENT
  Sex: Female

DRUGS (3)
  1. BELIMUMAB [Suspect]
     Active Substance: BELIMUMAB
     Indication: FATIGUE
  2. BELIMUMAB [Suspect]
     Active Substance: BELIMUMAB
     Indication: ARTHROPATHY
     Dosage: UNK
  3. BELIMUMAB [Suspect]
     Active Substance: BELIMUMAB
     Indication: LABORATORY TEST ABNORMAL

REACTIONS (6)
  - Thrombocytopenia [Recovering/Resolving]
  - Leukocytosis [Recovering/Resolving]
  - Spherocytic anaemia [Recovering/Resolving]
  - Product use in unapproved indication [Unknown]
  - Neutrophil count increased [Recovering/Resolving]
  - Thalassaemia [Recovering/Resolving]
